FAERS Safety Report 12673913 (Version 2)
Quarter: 2016Q4

REPORT INFORMATION
  Report Type: Spontaneous
  Country: US (occurrence: US)
  Receive Date: 20160822
  Receipt Date: 20161228
  Transmission Date: 20170207
  Serious: No
  Sender: FDA-Public Use
  Company Number: US-009507513-1608USA008985

PATIENT
  Sex: Male

DRUGS (1)
  1. PROPECIA [Suspect]
     Active Substance: FINASTERIDE
     Indication: ALOPECIA
     Dosage: 1 MG, QD
     Route: 048
     Dates: start: 19991108, end: 200112

REACTIONS (6)
  - Peyronie^s disease [Unknown]
  - Hernia [Unknown]
  - Erectile dysfunction [Not Recovered/Not Resolved]
  - Gynaecomastia [Unknown]
  - Sexual dysfunction [Not Recovered/Not Resolved]
  - Cataract [Unknown]

NARRATIVE: CASE EVENT DATE: 2002
